FAERS Safety Report 8202301-8 (Version None)
Quarter: 2012Q1

REPORT INFORMATION
  Report Type: 
  Country: None (occurrence: None)
  Receive Date: 20120312
  Receipt Date: 20120302
  Transmission Date: 20120608
  Serious: Yes (Hospitalization, Other)
  Sender: FDA-Public Use
  Company Number: BR-JNJFOC-20120208655

PATIENT
  Sex: Female
  Weight: 63 kg

DRUGS (4)
  1. STELARA [Suspect]
     Indication: PSORIATIC ARTHROPATHY
     Dosage: ONCE
     Route: 058
     Dates: start: 20111024
  2. METHOTREXATE [Suspect]
     Indication: PSORIASIS
  3. STELARA [Suspect]
     Indication: PSORIASIS
     Dosage: ONCE
     Route: 058
     Dates: start: 20111024
  4. METHOTREXATE [Suspect]
     Indication: PSORIATIC ARTHROPATHY

REACTIONS (5)
  - INTERSTITIAL LUNG DISEASE [None]
  - DIARRHOEA [None]
  - PULMONARY FIBROSIS [None]
  - PYREXIA [None]
  - NAUSEA [None]
